FAERS Safety Report 8977944 (Version 1)
Quarter: 2012Q4

REPORT INFORMATION
  Report Type: Report from Study
  Country: CA (occurrence: CA)
  Receive Date: 20121220
  Receipt Date: 20121220
  Transmission Date: 20130627
  Serious: Yes (Other)
  Sender: FDA-Public Use
  Company Number: CA-ROCHE-1170207

PATIENT
  Age: 45 Year
  Sex: Female
  Weight: 62.07 kg

DRUGS (4)
  1. OMALIZUMAB [Suspect]
     Indication: ASTHMA
     Route: 058
     Dates: start: 20060211
  2. CORTISONE [Concomitant]
     Indication: PRODUCT USED FOR UNKNOWN INDICATION
     Route: 065
     Dates: start: 20070517
  3. MELOXICAM [Concomitant]
  4. PREDNISONE [Concomitant]

REACTIONS (8)
  - Oedema peripheral [Recovering/Resolving]
  - Breath sounds abnormal [Recovering/Resolving]
  - Nasopharyngitis [Unknown]
  - Wheezing [Recovered/Resolved]
  - Increased appetite [Unknown]
  - Pulmonary congestion [Unknown]
  - Menopausal symptoms [Unknown]
  - Weight increased [Unknown]
